FAERS Safety Report 5707584-1 (Version None)
Quarter: 2008Q2

REPORT INFORMATION
  Report Type: 
  Country: None (occurrence: None)
  Receive Date: 20080410
  Receipt Date: 20080109
  Transmission Date: 20081010
  Serious: Yes (Other)
  Sender: FDA-Public Use
  Company Number: WWISSUE-138

PATIENT
  Sex: Female

DRUGS (6)
  1. PRIMIDONE [Suspect]
     Indication: ESSENTIAL TREMOR
     Dosage: 1/2 TAB 2X DAY/ORAL
     Route: 048
  2. NUROTIN FOR YEARS, SWITCHED TO MYSOLINE [Concomitant]
  3. PREVACIT [Concomitant]
  4. ALEGRA GENERIC (FAXOFENADINE HCL) [Concomitant]
  5. COESAR, PLAVIX, LEVICET, ENDEROL [Concomitant]
  6. NITROGLYCERIN TAKEN IN THE PAST FOR HER HEART [Concomitant]

REACTIONS (1)
  - ALOPECIA [None]
